FAERS Safety Report 18497912 (Version 5)
Quarter: 2022Q2

REPORT INFORMATION
  Report Type: Spontaneous
  Country: NL (occurrence: NL)
  Receive Date: 20201112
  Receipt Date: 20220523
  Transmission Date: 20220721
  Serious: Yes (Other)
  Sender: FDA-Public Use
  Company Number: NL-INDIVIOR EUROPE LIMITED-INDV-123462-2020

PATIENT
  Sex: Male

DRUGS (31)
  1. MODAFINIL [Interacting]
     Active Substance: MODAFINIL
     Indication: Attention deficit hyperactivity disorder
     Dosage: 100 MILLIGRAM, QD
     Route: 048
     Dates: start: 20191106
  2. MODAFINIL [Interacting]
     Active Substance: MODAFINIL
     Dosage: 400 MILLIGRAM, QD
     Route: 048
     Dates: start: 20200131
  3. MODAFINIL [Interacting]
     Active Substance: MODAFINIL
     Dosage: 50 MILLIGRAM
     Route: 065
     Dates: start: 20220309
  4. SUBOXONE [Interacting]
     Active Substance: BUPRENORPHINE HYDROCHLORIDE\NALOXONE HYDROCHLORIDE
     Indication: Pain management
     Dosage: 2 MILLIGRAM, TID
     Route: 060
     Dates: start: 20191125, end: 2019
  5. SUBOXONE [Interacting]
     Active Substance: BUPRENORPHINE HYDROCHLORIDE\NALOXONE HYDROCHLORIDE
     Indication: Drug dependence
     Dosage: 2 MILLIGRAM, QID
     Route: 060
     Dates: start: 20191122, end: 201911
  6. SUBOXONE [Interacting]
     Active Substance: BUPRENORPHINE HYDROCHLORIDE\NALOXONE HYDROCHLORIDE
     Dosage: 12 MILLIGRAM, Q8H12 MILIGRAM EVERY 8 HOURS
     Route: 065
     Dates: start: 20211227
  7. SUBOXONE [Interacting]
     Active Substance: BUPRENORPHINE HYDROCHLORIDE\NALOXONE HYDROCHLORIDE
     Dosage: TAKING LESS TO 2MG
     Route: 065
     Dates: start: 20211227
  8. SUBOXONE [Interacting]
     Active Substance: BUPRENORPHINE HYDROCHLORIDE\NALOXONE HYDROCHLORIDE
     Dosage: 6 MILLIGRAM, QD (2 MILLIGRAM, TID (TAKING 2X2 TABLET))
     Route: 065
     Dates: start: 20220102
  9. SUBOXONE [Interacting]
     Active Substance: BUPRENORPHINE HYDROCHLORIDE\NALOXONE HYDROCHLORIDE
     Indication: Pain management
     Dosage: 8 MILLIGRAM (HIGH DOSAGE OF 4-5 TIMES THE 8 MG)
     Route: 060
     Dates: start: 20191230, end: 202001
  10. SUBOXONE [Interacting]
     Active Substance: BUPRENORPHINE HYDROCHLORIDE\NALOXONE HYDROCHLORIDE
     Indication: Drug dependence
     Dosage: 8 MILLIGRAM ((8 MG, QID WITH ANOTHER 8 MG DAILY IF PAIN DICTATED)
     Route: 060
     Dates: start: 2019, end: 2019
  11. SUBOXONE [Interacting]
     Active Substance: BUPRENORPHINE HYDROCHLORIDE\NALOXONE HYDROCHLORIDE
     Dosage: UNK
     Route: 065
     Dates: start: 2016
  12. SUBOXONE [Interacting]
     Active Substance: BUPRENORPHINE HYDROCHLORIDE\NALOXONE HYDROCHLORIDE
     Dosage: 24 MILLIGRAM, QD (8 MILLIGRAM, TID )
     Route: 060
     Dates: start: 202201
  13. OXYCODONE [Suspect]
     Active Substance: OXYCODONE
     Indication: Hyperhidrosis
     Dosage: 100 MILLIGRAM, QD
     Route: 065
  14. OXYCODONE [Suspect]
     Active Substance: OXYCODONE
     Indication: Back pain
     Dosage: 200 MILLIGRAM, QD
     Route: 065
     Dates: start: 20200127
  15. OXYCODONE [Suspect]
     Active Substance: OXYCODONE
     Dosage: UNK
     Route: 065
  16. OXYCODONE [Suspect]
     Active Substance: OXYCODONE
     Dosage: 150 MILLIGRAM
     Route: 065
  17. OXYCODONE [Suspect]
     Active Substance: OXYCODONE
     Dosage: 40 MILLIGRAM,UNK
     Route: 065
  18. OXYCODONE [Suspect]
     Active Substance: OXYCODONE
     Dosage: 300 MILLIGRAM, QD
     Route: 065
  19. ACETAMINOPHEN [Concomitant]
     Active Substance: ACETAMINOPHEN
     Indication: Product used for unknown indication
     Dosage: 1000 MILLIGRAM, QID (1000 MG, QID (TABLET))
     Route: 048
     Dates: start: 20191107
  20. ACETAMINOPHEN [Concomitant]
     Active Substance: ACETAMINOPHEN
     Dosage: 1000 MILLIGRAM, QID (SUGGESTED TO TAKE AT SAME TIME AS SUBOXONE)
     Route: 048
     Dates: start: 20200124
  21. BUDESONIDE [Concomitant]
     Active Substance: BUDESONIDE
     Indication: Product used for unknown indication
     Dosage: 50 MICROGRAM, PRN (NASAL SPRAY))
     Route: 045
     Dates: start: 20191104
  22. CLONIDINE [Concomitant]
     Active Substance: CLONIDINE
     Indication: Hyperhidrosis
     Dosage: 0.1 MILLIGRAM, QD (0.025 MILLIGRAM, QID)
     Route: 065
     Dates: start: 2020
  23. CLONIDINE [Concomitant]
     Active Substance: CLONIDINE
     Indication: Pruritus
     Dosage: 50 MICROGRAM, QD
     Route: 048
     Dates: start: 20200124
  24. CLONIDINE [Concomitant]
     Active Substance: CLONIDINE
     Dosage: UNK, 0.025 MGX4 PER DAY
     Route: 065
  25. OMEPRAZOLE [Concomitant]
     Active Substance: OMEPRAZOLE
     Indication: Product used for unknown indication
     Dosage: 40 MILLIGRAM, BID (MSR CAPSULE))
     Route: 048
     Dates: start: 20191112
  26. OMEPRAZOLE [Concomitant]
     Active Substance: OMEPRAZOLE
     Dosage: 40 MILLIGRAM, BID (MSR CAPSULE))
     Route: 048
     Dates: start: 20200129
  27. CETIRIZINE [Concomitant]
     Active Substance: CETIRIZINE HYDROCHLORIDE
     Indication: Product used for unknown indication
     Dosage: 10 MILLIGRAM, QD (10 MG, QD)
     Route: 048
     Dates: start: 20200130
  28. CETIRIZINE [Concomitant]
     Active Substance: CETIRIZINE HYDROCHLORIDE
     Indication: Pruritus
  29. DIAZEPAM [Concomitant]
     Active Substance: DIAZEPAM
     Indication: Musculoskeletal discomfort
     Dosage: 1 WEEK A MONTH 100MG IN DIVIDED OVER 2 DAYS
     Route: 065
  30. DULOXETINE [Concomitant]
     Active Substance: DULOXETINE
     Indication: Product used for unknown indication
     Dosage: 60 MILLIGRAM, QD
     Route: 065
  31. PIPAMPERONE HYDROCHLORIDE [Concomitant]
     Active Substance: PIPAMPERONE HYDROCHLORIDE
     Indication: Product used for unknown indication
     Dosage: 20 MILLIGRAM, QD
     Route: 065

REACTIONS (21)
  - Fatigue [Unknown]
  - Suicidal ideation [Recovered/Resolved]
  - Aggression [Unknown]
  - Depression [Not Recovered/Not Resolved]
  - Inappropriate schedule of product administration [Not Recovered/Not Resolved]
  - Drug interaction [Recovered/Resolved]
  - Therapeutic product effect incomplete [Unknown]
  - Overdose [Recovered/Resolved]
  - Drug effect less than expected [Unknown]
  - Drug dependence [Recovered/Resolved]
  - Dysgeusia [Unknown]
  - Pain in extremity [Unknown]
  - Back pain [Unknown]
  - Nausea [Unknown]
  - Hyperhidrosis [Not Recovered/Not Resolved]
  - Headache [Not Recovered/Not Resolved]
  - Intentional product use issue [Recovered/Resolved]
  - Intentional underdose [Unknown]
  - Muscle spasms [Unknown]
  - Pruritus [Unknown]
  - Tremor [Unknown]

NARRATIVE: CASE EVENT DATE: 20160101
